FAERS Safety Report 16154512 (Version 2)
Quarter: 2019Q2

REPORT INFORMATION
  Report Type: Spontaneous
  Country: US (occurrence: US)
  Receive Date: 20190403
  Receipt Date: 20190501
  Transmission Date: 20190711
  Serious: Yes (Hospitalization)
  Sender: FDA-Public Use
  Company Number: US-MALLINCKRODT-T201902669

PATIENT
  Sex: Female
  Weight: 77 kg

DRUGS (1)
  1. H.P. ACTHAR [Suspect]
     Active Substance: CORTICOTROPIN
     Indication: TEMPORAL ARTERITIS
     Dosage: 80 UNITS, 1 ML, EVERY 72 HOURS AS DIRECTED
     Route: 058
     Dates: start: 201902

REACTIONS (1)
  - Pain in extremity [Unknown]

NARRATIVE: CASE EVENT DATE: 2019
